FAERS Safety Report 16944016 (Version 1)
Quarter: 2019Q4

REPORT INFORMATION
  Report Type: Spontaneous
  Country: US (occurrence: US)
  Receive Date: 20191022
  Receipt Date: 20191022
  Transmission Date: 20200122
  Serious: Yes (Hospitalization)
  Sender: FDA-Public Use
  Company Number: US-TEVA-2019-US-1125499

PATIENT
  Age: 57 Year
  Sex: Male

DRUGS (3)
  1. CALCIUM GLUCONATE. [Suspect]
     Active Substance: CALCIUM GLUCONATE
     Indication: OVERDOSE
     Dosage: LOADING DOSE: 0.6 ML/KG
     Route: 040
  2. CALCIUM GLUCONATE. [Suspect]
     Active Substance: CALCIUM GLUCONATE
     Indication: OVERDOSE
     Dosage: MAINTENANCE DOSE: 0.6-1.6 ML/KG/H; RECEIVED 20G OF CALCIUM GLUCONATE
     Route: 041
  3. AMLODIPINE [Suspect]
     Active Substance: AMLODIPINE BESYLATE
     Indication: INTENTIONAL OVERDOSE
     Route: 048

REACTIONS (4)
  - Electrocardiogram QT prolonged [Unknown]
  - Intentional overdose [Unknown]
  - Hypercalcaemia [Unknown]
  - Pancreatitis [Unknown]
